FAERS Safety Report 5275607-2 (Version None)
Quarter: 2007Q1

REPORT INFORMATION
  Report Type: 
  Country: None (occurrence: None)
  Receive Date: 20070326
  Receipt Date: 20070314
  Transmission Date: 20070707
  Serious: Yes (Other)
  Sender: FDA-Public Use
  Company Number: PHNU2007DE01208

PATIENT
  Age: 70 Year
  Sex: Female

DRUGS (3)
  1. EXFORGE [Suspect]
     Indication: HYPERTENSION
     Dosage: 5/160 MG, QD
     Route: 048
     Dates: start: 20070226, end: 20070301
  2. LOCOL [Concomitant]
  3. BELOC [Concomitant]

REACTIONS (2)
  - HEART RATE IRREGULAR [None]
  - OEDEMA PERIPHERAL [None]
